FAERS Safety Report 16903836 (Version 1)
Quarter: 2019Q4

REPORT INFORMATION
  Report Type: Spontaneous
  Country: US (occurrence: US)
  Receive Date: 20191010
  Receipt Date: 20191010
  Transmission Date: 20200122
  Serious: No
  Sender: FDA-Public Use
  Company Number: US-009507513-1910USA005815

PATIENT
  Age: 18 Year
  Sex: Male

DRUGS (1)
  1. SIVEXTRO [Suspect]
     Active Substance: TEDIZOLID PHOSPHATE
     Indication: SKIN INFECTION
     Dosage: 1 DOSAGE FORM, QD (REPORTED AS ^1 TABLET DAILY^)
     Route: 048

REACTIONS (1)
  - Diarrhoea [Recovered/Resolved]
